FAERS Safety Report 10158991 (Version 1)
Quarter: 2014Q2

REPORT INFORMATION
  Report Type: Spontaneous
  Country: US (occurrence: US)
  Receive Date: 20140508
  Receipt Date: 20140508
  Transmission Date: 20141212
  Serious: No
  Sender: FDA-Public Use
  Company Number: US-BIOGENIDEC-2014BI040015

PATIENT
  Age: 57 Year
  Sex: Female
  Weight: 92 kg

DRUGS (10)
  1. TECFIDERA [Suspect]
     Indication: PRODUCT USED FOR UNKNOWN INDICATION
     Route: 048
  2. PANTOPRAZOLE [Concomitant]
  3. AMLODIPINE [Concomitant]
  4. PREDNISONE [Concomitant]
  5. ATENOLOL [Concomitant]
  6. OXYBUTYNIN ER [Concomitant]
  7. GABAPENTIN [Concomitant]
  8. ASPIRIN EC [Concomitant]
  9. ATORVASTATIN [Concomitant]
  10. DULOXETINE [Concomitant]

REACTIONS (2)
  - Memory impairment [Unknown]
  - Fall [Recovered/Resolved]
